FAERS Safety Report 8168446-6 (Version None)
Quarter: 2012Q1

REPORT INFORMATION
  Report Type: 
  Country: None (occurrence: None)
  Receive Date: 20120227
  Receipt Date: 20120216
  Transmission Date: 20120608
  Serious: Yes (Hospitalization, Other)
  Sender: FDA-Public Use
  Company Number: US-SANOFI-AVENTIS-A03200501825

PATIENT
  Age: 64 Year
  Sex: Female
  Weight: 52.2 kg

DRUGS (16)
  1. PLAVIX [Suspect]
     Indication: ANGIOGRAM
     Dosage: UNIT DOSE: 75 MG
     Route: 048
     Dates: start: 20050329, end: 20051229
  2. SEPTRA [Concomitant]
  3. CLONAZEPAM [Concomitant]
  4. PLAVIX [Suspect]
     Indication: ANGIOPLASTY
     Dosage: UNIT DOSE: 75 MG
     Route: 048
     Dates: start: 20050329, end: 20051229
  5. ZYRTEC [Concomitant]
  6. MULTIPLE VITAMINS [Concomitant]
  7. LEVAQUIN [Concomitant]
  8. PLAVIX [Suspect]
     Indication: STENT PLACEMENT
     Dosage: UNIT DOSE: 75 MG
     Route: 048
     Dates: start: 20050329, end: 20051229
  9. ASPIRIN [Suspect]
  10. TYLENOL W/ CODEINE NO. 3 [Concomitant]
  11. PLAVIX [Suspect]
     Indication: CORONARY ARTERY DISEASE
     Dosage: UNIT DOSE: 75 MG
     Route: 048
     Dates: start: 20050329, end: 20051229
  12. LIPITOR [Concomitant]
     Dosage: UNIT DOSE: 40 MG
     Route: 048
     Dates: start: 20050329
  13. LORAZEPAM [Concomitant]
  14. TOPROL-XL [Suspect]
     Route: 048
     Dates: start: 20050329, end: 20050101
  15. DICLOFENAC SODIUM [Concomitant]
  16. ASPIRIN [Suspect]
     Indication: CORONARY ARTERY DISEASE
     Dosage: UNIT DOSE: 81 MG
     Route: 048
     Dates: start: 20050329

REACTIONS (15)
  - HYPHAEMA [None]
  - CONSTIPATION [None]
  - OCULAR HYPERAEMIA [None]
  - HAEMORRHAGE SUBCUTANEOUS [None]
  - ANAEMIA [None]
  - ALTERED STATE OF CONSCIOUSNESS [None]
  - HAEMORRHAGIC DIATHESIS [None]
  - GASTROINTESTINAL HAEMORRHAGE [None]
  - FATIGUE [None]
  - ARTERIOSCLEROSIS CORONARY ARTERY [None]
  - CONTUSION [None]
  - POST PROCEDURAL HAEMORRHAGE [None]
  - RECTAL HAEMORRHAGE [None]
  - HAEMATOMA [None]
  - DIZZINESS [None]
